FAERS Safety Report 14448033 (Version 1)
Quarter: 2018Q1

REPORT INFORMATION
  Report Type: Spontaneous
  Country: GB (occurrence: GB)
  Receive Date: 20180126
  Receipt Date: 20180126
  Transmission Date: 20180509
  Serious: Yes (Other)
  Sender: FDA-Public Use
  Company Number: GB-TEVA-2018-GB-850861

PATIENT
  Age: 56 Year
  Sex: Female

DRUGS (2)
  1. BISOPROLOL [Interacting]
     Active Substance: BISOPROLOL
     Route: 065
     Dates: start: 20170908
  2. VERAPAMIL [Suspect]
     Active Substance: VERAPAMIL HYDROCHLORIDE
     Dosage: 480 MILLIGRAM DAILY;
     Route: 065

REACTIONS (3)
  - Bradycardia [Unknown]
  - Blood pressure decreased [Unknown]
  - Labelled drug-drug interaction medication error [Unknown]

NARRATIVE: CASE EVENT DATE: 20170909
